FAERS Safety Report 13454958 (Version 2)
Quarter: 2017Q2

REPORT INFORMATION
  Report Type: Spontaneous
  Country: US (occurrence: US)
  Receive Date: 20170419
  Receipt Date: 20170517
  Transmission Date: 20170830
  Serious: Yes (Other)
  Sender: FDA-Public Use
  Company Number: US-009507513-1704USA005486

PATIENT
  Age: 81 Year
  Sex: Male

DRUGS (4)
  1. NORTHERA [Suspect]
     Active Substance: DROXIDOPA
     Dosage: 1 CAPSULE THREE TIMES DAILY
     Dates: start: 20170307, end: 201703
  2. SINEMET [Suspect]
     Active Substance: CARBIDOPA\LEVODOPA
     Dosage: UNK
     Route: 048
     Dates: start: 201704
  3. NORTHERA [Suspect]
     Active Substance: DROXIDOPA
     Dosage: 2 CAPSULES THREE TIMES DAILY
     Route: 048
     Dates: start: 201703
  4. SINEMET [Suspect]
     Active Substance: CARBIDOPA\LEVODOPA
     Dosage: UNK
     Route: 048
     Dates: end: 20170320

REACTIONS (8)
  - Confusional state [Unknown]
  - Cataract [Unknown]
  - Drug ineffective [Unknown]
  - Macular degeneration [Unknown]
  - Parkinson^s disease [Unknown]
  - Blood pressure decreased [Unknown]
  - Musculoskeletal stiffness [Unknown]
  - Blood pressure increased [Unknown]

NARRATIVE: CASE EVENT DATE: 201703
